FAERS Safety Report 10078286 (Version 2)
Quarter: 2014Q2

REPORT INFORMATION
  Report Type: Spontaneous
  Country: AU (occurrence: AU)
  Receive Date: 20140415
  Receipt Date: 20140429
  Transmission Date: 20141212
  Serious: Yes (Other)
  Sender: FDA-Public Use
  Company Number: AU-RANBAXY-2014RR-80188

PATIENT
  Age: 6 Year
  Sex: Female
  Weight: 20 kg

DRUGS (2)
  1. CODEINE [Suspect]
     Indication: PAIN
     Dosage: 10 ML, DAILY
     Route: 048
     Dates: start: 19910513, end: 19910514
  2. PETHIDINE HYDROCHLORIDE [Suspect]
     Indication: PAIN
     Dosage: 15 MG, DAILY
     Route: 048
     Dates: start: 19910514, end: 19910515

REACTIONS (7)
  - Respiratory depression [Recovered/Resolved]
  - Pruritus [Recovered/Resolved]
  - Dysphonia [Recovered/Resolved]
  - Insomnia [Recovered/Resolved]
  - Rash [Recovered/Resolved]
  - Agitation [Recovered/Resolved]
  - Pallor [Recovered/Resolved]
